FAERS Safety Report 24163538 (Version 1)
Quarter: 2024Q3

REPORT INFORMATION
  Report Type: Spontaneous
  Country: US (occurrence: US)
  Receive Date: 20240801
  Receipt Date: 20240801
  Transmission Date: 20241017
  Serious: Yes (Hospitalization, Other)
  Sender: FRESENIUS KABI
  Company Number: US-FreseniusKabi-FK202411679

PATIENT
  Age: 27 Year
  Sex: Female
  Weight: 69.5 kg

DRUGS (12)
  1. VINBLASTINE [Suspect]
     Active Substance: VINBLASTINE
     Indication: Hodgkin^s disease
     Dosage: ROUTE OF ADMINISTRATION: INTRAVENOUS (NOT OTHERWISE SPECIFIED) ( INT ) ?LAST TOTAL DOSE 11.5 MG
     Dates: start: 20190314, end: 20190401
  2. DOXORUBICIN HYDROCHLORIDE [Suspect]
     Active Substance: DOXORUBICIN HYDROCHLORIDE
     Indication: Hodgkin^s disease
     Dosage: ROUTE OF ADMINISTRATION: INTRAVENOUS (NOT OTHERWISE SPECIFIED) ( INT ) ?LAST TOTAL DOSE 47 MG?DOSAGE
     Dates: start: 20190314, end: 20190401
  3. DACARBAZINE [Suspect]
     Active Substance: DACARBAZINE
     Indication: Hodgkin^s disease
     Dosage: ROUTE OF ADMINISTRATION: INTRAVENOUS (NOT OTHERWISE SPECIFIED) ( INT ) ?LAST TOTAL DOSE 710 MG?DOSAG
     Dates: start: 20190314, end: 20190401
  4. BRENTUXIMAB VEDOTIN [Suspect]
     Active Substance: BRENTUXIMAB VEDOTIN
     Indication: Hodgkin^s disease
     Dosage: ROUTE OF ADMINISTRATION: INTRAVENOUS (NOT OTHERWISE SPECIFIED) ( INT ) ?LAST TOTAL DOSE  90 MG?DOSAG
     Dates: start: 20190314, end: 20190401
  5. LOVENOX [Concomitant]
     Active Substance: ENOXAPARIN SODIUM
     Indication: Product used for unknown indication
     Dates: start: 20190404, end: 20190413
  6. HEPARIN [Concomitant]
     Active Substance: HEPARIN SODIUM
     Indication: Product used for unknown indication
  7. ZOFRAN [Concomitant]
     Active Substance: ONDANSETRON HYDROCHLORIDE
     Indication: Product used for unknown indication
     Dates: start: 20190409
  8. Senokot-S (senna-docusate) [Concomitant]
     Indication: Product used for unknown indication
     Dosage: DOSAGE FORM: TABLET
     Dates: start: 20190409, end: 20190410
  9. DILAUDID [Concomitant]
     Active Substance: HYDROMORPHONE HYDROCHLORIDE
     Indication: Product used for unknown indication
     Dates: start: 20190409, end: 20190411
  10. MELATONIN [Concomitant]
     Active Substance: MELATONIN
     Indication: Product used for unknown indication
     Dosage: DOSAGE FORM: TABLET
     Dates: start: 20190409, end: 20190413
  11. PHENERGAN [Concomitant]
     Active Substance: PROMETHAZINE HYDROCHLORIDE
     Indication: Product used for unknown indication
     Dates: start: 20190409, end: 20190411
  12. sodium chloride 0.9 percent [Concomitant]
     Indication: Product used for unknown indication
     Dates: start: 20190409, end: 20190413

REACTIONS (4)
  - Ileus [Recovered/Resolved]
  - Alanine aminotransferase increased [Recovered/Resolved]
  - Failure to thrive [Unknown]
  - Dehydration [Unknown]

NARRATIVE: CASE EVENT DATE: 20190409
